FAERS Safety Report 4341489-6 (Version None)
Quarter: 2004Q2

REPORT INFORMATION
  Report Type: 
  Country: None (occurrence: None)
  Receive Date: 20040415
  Receipt Date: 20040405
  Transmission Date: 20050107
  Serious: Yes (Other)
  Sender: FDA-Public Use
  Company Number: CIP04000515

PATIENT
  Age: 65 Year
  Sex: Female

DRUGS (21)
  1. ACTONEL [Suspect]
     Indication: OSTEOPOROSIS
     Dosage: 35 MG ONE DOSE ONLY, ORAL
     Route: 048
     Dates: start: 20040302, end: 20040302
  2. ADVANTAN (METHYLPREDNISOLONE ACEPONATE) CREAM [Concomitant]
  3. ANPEC TABLET [Concomitant]
  4. ACETYLSALICYLIC ACID SRT [Concomitant]
  5. BRICANYL TURBUHALER (TERBUTALINE SULFATE) [Concomitant]
  6. CELEBREX [Concomitant]
  7. HYDROCORTISONE CREAM [Concomitant]
  8. IMIGRAN/NOR/ (SUMATRIPTAN SUCCINATE) TABLET [Concomitant]
  9. KENACOMB (GRAMICIDIN, NEOMYCIN SULFATE, NYSTATIN, TRIAMCINOLONE ACETON [Concomitant]
  10. LOMOTIL [Concomitant]
  11. MAXOLON (METOCLOPRAMIDE HYDROCHLORIDE) TABLET [Concomitant]
  12. MYLANTA (SIMETICONE, MAGNESIUM HYDROXIDE, ALUMINIUM HYDROXIDE GEL, DRI [Concomitant]
  13. NILSTAT (NYSTATIN) DROP [Concomitant]
  14. OMEPRAZOLE [Concomitant]
  15. PANAMAX TABLET [Concomitant]
  16. PULMICORT TURBUHALER (BUDESONIDE) INHALER [Concomitant]
  17. QUININE SULFATE (QUININE SULFATE) TABLET [Concomitant]
  18. PROCHLORPERAZINE (PROCHLORPERAZINE) TABLET [Concomitant]
  19. TEMAZE (TEMAZEPAM) CAPSULE [Concomitant]
  20. TRAMAL (TRAMADOL HYDROCHLORIDE) CAPSULE [Concomitant]
  21. TRITACE (RAMIPRIL) TABLET [Concomitant]

REACTIONS (7)
  - EPILEPSY [None]
  - FATIGUE [None]
  - FEELING ABNORMAL [None]
  - HEADACHE [None]
  - NAUSEA [None]
  - PAIN [None]
  - VOMITING [None]
